FAERS Safety Report 8823747 (Version 1)
Quarter: 2012Q4

REPORT INFORMATION
  Report Type: Report from Study
  Country: US (occurrence: US)
  Receive Date: 20121003
  Receipt Date: 20121003
  Transmission Date: 20130627
  Serious: Yes (Death, Hospitalization)
  Sender: FDA-Public Use
  Company Number: US-CELGENEUS-163-21880-12091591

PATIENT
  Age: 75 Year
  Sex: Male

DRUGS (1)
  1. REVLIMID [Suspect]
     Indication: MDS
     Dosage: 50 Milligram
     Route: 048
     Dates: start: 20120629, end: 20120911

REACTIONS (3)
  - Acute myeloid leukaemia [Fatal]
  - Epistaxis [Unknown]
  - Pneumonia [Unknown]
